FAERS Safety Report 7019315-6 (Version None)
Quarter: 2010Q3

REPORT INFORMATION
  Report Type: 
  Country: None (occurrence: None)
  Receive Date: 20100922
  Receipt Date: 20100907
  Transmission Date: 20110219
  Serious: Yes (Hospitalization)
  Sender: FDA-Public Use
  Company Number: 018929

PATIENT
  Sex: Male

DRUGS (8)
  1. ROTIGOTINE (ROTIGOTINE) [Suspect]
     Indication: PARKINSON'S DISEASE
     Dosage: 2 MG TRANSDERMAL
     Route: 062
     Dates: start: 20100902
  2. CARBIDOPA + LEVODOPA [Concomitant]
  3. SELEGILINE HYDROCHLORIDE [Suspect]
  4. AMANTADINE HYDROCHLORIDE [Concomitant]
  5. ASCORBIC ACID [Concomitant]
  6. SOLIFENACIN SUCCINATE [Concomitant]
  7. MIDORINE HYDROCHLORIDE [Concomitant]
  8. ZOLPIDEM TARTRATE [Concomitant]

REACTIONS (4)
  - DEHYDRATION [None]
  - HEAT ILLNESS [None]
  - RENAL IMPAIRMENT [None]
  - SOMNOLENCE [None]
